FAERS Safety Report 5710915-X (Version None)
Quarter: 2008Q2

REPORT INFORMATION
  Report Type: 
  Country: None (occurrence: None)
  Receive Date: 20080421
  Receipt Date: 20080411
  Transmission Date: 20081010
  Serious: Yes (Other)
  Sender: FDA-Public Use
  Company Number: PHRM2008FR01268

PATIENT
  Age: 56 Year
  Sex: Female

DRUGS (3)
  1. CLOZAPINE [Suspect]
     Indication: SCHIZOPHRENIA
     Route: 048
  2. CLOZAPINE [Suspect]
     Dosage: 75 MG DAILY
     Route: 048
     Dates: start: 20060410, end: 20060505
  3. NEURONTIN [Concomitant]
     Dosage: 3 DF DAILY
     Route: 048
     Dates: start: 20060404

REACTIONS (3)
  - LEUKOCYTOSIS [None]
  - MYELODYSPLASTIC SYNDROME [None]
  - THROMBOCYTHAEMIA [None]
